FAERS Safety Report 8596704-X (Version None)
Quarter: 2012Q3

REPORT INFORMATION
  Report Type: 
  Country: None (occurrence: None)
  Receive Date: 20120815
  Receipt Date: 20120814
  Transmission Date: 20120928
  Serious: Yes (Hospitalization)
  Sender: FDA-Public Use
  Company Number: US-ROXANE LABORATORIES, INC.-2012-RO-01703RO

PATIENT
  Age: 47 Year
  Sex: Female

DRUGS (3)
  1. AZATHIOPRINE SODIUM [Suspect]
     Indication: NEUROMYELITIS OPTICA
     Dosage: 125 MG
     Route: 048
     Dates: start: 20110101
  2. VITAMIN B-12 [Concomitant]
     Indication: VITAMIN B12 DEFICIENCY
  3. FLORINEF [Concomitant]
     Indication: BONE TUBERCULOSIS

REACTIONS (1)
  - CONVULSION [None]
